FAERS Safety Report 14561545 (Version 2)
Quarter: 2018Q1

REPORT INFORMATION
  Report Type: Spontaneous
  Country: US (occurrence: US)
  Receive Date: 20180222
  Receipt Date: 20180309
  Transmission Date: 20180509
  Serious: No
  Sender: FDA-Public Use
  Company Number: US-VERTEX PHARMACEUTICALS-2018-001283

PATIENT
  Age: 30 Year
  Sex: Female
  Weight: 58 kg

DRUGS (8)
  1. ALBUTEROL                          /00139501/ [Concomitant]
     Active Substance: ALBUTEROL
     Dosage: 3 MILLILITER, BID, BY NEBULISATION
     Route: 055
  2. ZENPEP [Concomitant]
     Active Substance: PANCRELIPASE AMYLASE\PANCRELIPASE LIPASE\PANCRELIPASE PROTEASE
     Dosage: 5 CAPS WITH MEALS, 3-4 CAPS WITH SNACKS
     Route: 048
  3. LANTUS [Concomitant]
     Active Substance: INSULIN GLARGINE
     Dosage: 12 UT, DAILY
     Route: 058
  4. PRILOSEC [Concomitant]
     Active Substance: OMEPRAZOLE MAGNESIUM
     Dosage: 1 CAP, DAILY
     Route: 048
  5. ORKAMBI [Suspect]
     Active Substance: IVACAFTOR\LUMACAFTOR
     Indication: CYSTIC FIBROSIS
     Dosage: 2 TABS (200/125 MG EACH), BID
     Route: 048
     Dates: start: 201610
  6. ATROVENT [Concomitant]
     Active Substance: IPRATROPIUM BROMIDE
     Dosage: 2 SPRAYS, BID
     Route: 045
  7. SINGULAIR [Concomitant]
     Active Substance: MONTELUKAST SODIUM
     Dosage: 1 TAB, QD
     Route: 048
  8. ACTIGALL [Concomitant]
     Active Substance: URSODIOL
     Dosage: 2 DOSAGE FORM, BID
     Route: 048

REACTIONS (1)
  - Sinusitis [Recovered/Resolved]

NARRATIVE: CASE EVENT DATE: 20180217
